FAERS Safety Report 8260179-0 (Version None)
Quarter: 2012Q2

REPORT INFORMATION
  Report Type: 
  Country: None (occurrence: None)
  Receive Date: 20120404
  Receipt Date: 20120327
  Transmission Date: 20120825
  Serious: Yes (Other)
  Sender: FDA-Public Use
  Company Number: GR-BRISTOL-MYERS SQUIBB COMPANY-16481285

PATIENT
  Sex: Female

DRUGS (4)
  1. CARVEDILOL [Suspect]
     Indication: HYPERTENSION
     Dosage: HALF TAB A DAY
     Route: 048
  2. NORVASC [Suspect]
     Indication: HYPERTENSION
     Dosage: CAPSULE HARD FOR MANY YEARS INTIALLY I/DAY THEN INCREASED TO BID
     Route: 048
  3. IRBESARTAN + HYDROCHLOROTHIAZIDE [Suspect]
     Indication: HYPERTENSION
     Dosage: 1DF=300+25MG
     Route: 048
  4. VASTAREL [Suspect]
     Indication: ANGIOPATHY
     Route: 048

REACTIONS (4)
  - HEADACHE [None]
  - BLOOD PRESSURE SYSTOLIC INCREASED [None]
  - CHILLS [None]
  - LOWER LIMB FRACTURE [None]
